FAERS Safety Report 7483615-6 (Version None)
Quarter: 2011Q2

REPORT INFORMATION
  Report Type: 
  Country: None (occurrence: None)
  Receive Date: 20110517
  Receipt Date: 20110512
  Transmission Date: 20111010
  Serious: No
  Sender: FDA-Public Use
  Company Number: US-PFIZER INC-2011102428

PATIENT
  Sex: Female
  Weight: 72.562 kg

DRUGS (5)
  1. CHANTIX [Suspect]
     Indication: SMOKING CESSATION THERAPY
     Dosage: 0.5 MG, 2X/DAY
     Route: 048
     Dates: start: 20110201
  2. BLACK COHOSH [Concomitant]
     Indication: HOT FLUSH
     Dosage: UNK
  3. PROGESTERONE [Concomitant]
     Dosage: UNK
     Route: 061
  4. VITAMINS [Concomitant]
     Dosage: DAILY
     Route: 048
  5. NASONEX [Concomitant]
     Indication: HYPERSENSITIVITY
     Dosage: UNK, DAILY
     Route: 045
     Dates: start: 20100101

REACTIONS (7)
  - WEIGHT INCREASED [None]
  - ABDOMINAL DISTENSION [None]
  - SALIVARY HYPERSECRETION [None]
  - INCREASED APPETITE [None]
  - HEADACHE [None]
  - NAUSEA [None]
  - ERUCTATION [None]
